FAERS Safety Report 21408808 (Version 2)
Quarter: 2022Q4

REPORT INFORMATION
  Report Type: Report from Study
  Country: BD (occurrence: BD)
  Receive Date: 20221004
  Receipt Date: 20221006
  Transmission Date: 20230113
  Serious: Yes (Death)
  Sender: FDA-Public Use
  Company Number: BD-NOVARTISPH-NVSC2022BD224168

PATIENT
  Age: 90 Year
  Sex: Female
  Weight: 72 kg

DRUGS (1)
  1. ACLASTA [Suspect]
     Active Substance: ZOLEDRONIC ACID
     Indication: Osteoporosis
     Dosage: 1 DOSAGE FORM, Q12MO (ONLY SINGLE DOSE WAS TAKEN)
     Route: 041
     Dates: start: 2021, end: 2021

REACTIONS (1)
  - Lung neoplasm malignant [Fatal]

NARRATIVE: CASE EVENT DATE: 20211101
